FAERS Safety Report 15016465 (Version 1)
Quarter: 2018Q2

REPORT INFORMATION
  Report Type: Spontaneous
  Country: US (occurrence: US)
  Receive Date: 20180531
  Receipt Date: 20180531
  Transmission Date: 20180711
  Serious: Yes (Hospitalization)
  Sender: FDA-Public Use
  Company Number: None

PATIENT
  Sex: Male

DRUGS (12)
  1. ABELCET [Suspect]
     Active Substance: AMPHOTERICIN B\DIMYRISTOYLPHOSPHATIDYLCHOLINE, DL-\DIMYRISTOYLPHOSPHATIDYLGLYCEROL, DL-
     Indication: BRONCHOPULMONARY ASPERGILLOSIS
     Route: 055
     Dates: start: 20171206
  2. NOVOLOG [Concomitant]
     Active Substance: INSULIN ASPART
  3. TACROLIMUS 1MG [Concomitant]
     Active Substance: TACROLIMUS
  4. FLUTICASONE NASAL SPRAY 50MCG [Concomitant]
  5. PRAVASTATIN. [Concomitant]
     Active Substance: PRAVASTATIN
  6. LEVOTHYROXINE 25MCG [Concomitant]
     Active Substance: LEVOTHYROXINE
  7. RESTASIS [Concomitant]
     Active Substance: CYCLOSPORINE
  8. ONDANSETRON 4MG [Concomitant]
     Active Substance: ONDANSETRON
  9. BENZONATE 100MG [Concomitant]
  10. LANTUS SOLOSTAR [Concomitant]
     Active Substance: INSULIN GLARGINE
  11. FLUCONAZOLE 200MG [Concomitant]
     Active Substance: FLUCONAZOLE
  12. FUROSEMIDE 40MG [Concomitant]
     Active Substance: FUROSEMIDE

REACTIONS (1)
  - Hospitalisation [None]
